FAERS Safety Report 7835223-2 (Version None)
Quarter: 2011Q4

REPORT INFORMATION
  Report Type: 
  Country: None (occurrence: None)
  Receive Date: 20111024
  Receipt Date: 20111011
  Transmission Date: 20120403
  Serious: Yes (Life-Threatening, Hospitalization, Other)
  Sender: FDA-Public Use
  Company Number: DE-BAYER-2011-046630

PATIENT
  Age: 21 Year
  Sex: Female
  Weight: 58 kg

DRUGS (1)
  1. YAZ [Suspect]
     Indication: CONTRACEPTION
     Dosage: 1 DF, UNK
     Route: 048
     Dates: start: 20100401, end: 20101207

REACTIONS (6)
  - MYALGIA [None]
  - PULMONARY EMBOLISM [None]
  - DYSPNOEA [None]
  - TACHYCARDIA [None]
  - COR PULMONALE ACUTE [None]
  - PELVIC VENOUS THROMBOSIS [None]
